FAERS Safety Report 7497867-X (Version None)
Quarter: 2011Q2

REPORT INFORMATION
  Report Type: 
  Country: None (occurrence: None)
  Receive Date: 20110524
  Receipt Date: 20090930
  Transmission Date: 20111010
  Serious: Yes (Hospitalization, Other)
  Sender: FDA-Public Use
  Company Number: US-BAYER-200934597NA

PATIENT
  Age: 65 Year
  Sex: Male
  Weight: 75 kg

DRUGS (21)
  1. PROTAMINE SULFATE [Concomitant]
     Dosage: 1220MG
     Route: 042
     Dates: start: 20030403, end: 20030403
  2. PLATELETS [Concomitant]
     Dosage: UNK
     Dates: start: 20030403
  3. GENTAMYCIN SULFATE [Concomitant]
     Dosage: 80MG EVERY 8 HOURS
     Route: 042
     Dates: start: 20030316, end: 20030321
  4. PLASMA [Concomitant]
     Dosage: UNK
     Dates: start: 20030403
  5. VANCOMYCIN [Concomitant]
     Dosage: 1 GRM X 2
     Route: 042
     Dates: start: 20030403
  6. HEPARIN [Concomitant]
     Dosage: 100 UNITS/HR
     Route: 042
     Dates: start: 20030402
  7. LASIX [Concomitant]
     Dosage: 20MG X 2
     Route: 042
     Dates: start: 20030403
  8. RED BLOOD CELLS [Concomitant]
     Dosage: UNK
     Dates: start: 20030403
  9. DOXYCYCLINE [Concomitant]
     Dosage: 100 MG, BID
     Route: 048
     Dates: start: 20030401
  10. FENTANYL [Concomitant]
     Dosage: 5-10 BOLUS
     Route: 042
     Dates: start: 20030403
  11. TRASYLOL [Suspect]
     Indication: CORONARY ARTERY BYPASS
  12. LIPITOR [Concomitant]
     Dosage: QD
     Route: 048
  13. VANCOMYCIN [Concomitant]
     Dosage: 1 GRAM EVERY 12 HOURS
     Route: 042
     Dates: start: 20030319
  14. AMICAR [Concomitant]
     Dosage: 10 GRAM
     Dates: start: 20030403, end: 20030403
  15. TRASYLOL [Suspect]
     Indication: AORTIC VALVE REPLACEMENT
     Dosage: TEST DOSE (1ML AND 10ML AMICAR) AND A LOADING DOSE OF 200ML, FOLLOWED BY 70ML/HR
     Route: 042
     Dates: start: 20030403, end: 20030403
  16. PLASMA [Concomitant]
     Dosage: UNK
     Dates: start: 20030403
  17. HEPARIN [Concomitant]
     Dosage: 100,000 UNITS + 70,000 UNITS LATER
     Route: 042
     Dates: start: 20030403, end: 20030403
  18. PROTONIX [Concomitant]
     Dosage: 40MG
     Route: 048
     Dates: start: 20030402
  19. PRIMACOR [Concomitant]
     Dosage: 3MG BOLUS FOLLOWED BY DRIP 0.5MH/HR
     Route: 042
     Dates: start: 20030403
  20. COUMADIN [Concomitant]
     Dosage: 3-5MG DAILY
     Route: 048
  21. AMIODARONE HCL [Concomitant]
     Dosage: 150MG X 2 FOLLOWED BY 1MCG/MIN
     Route: 042
     Dates: start: 20030403, end: 20030407

REACTIONS (5)
  - RENAL FAILURE ACUTE [None]
  - RENAL FAILURE [None]
  - UNEVALUABLE EVENT [None]
  - PAIN [None]
  - INJURY [None]
